FAERS Safety Report 20717488 (Version 1)
Quarter: 2022Q2

REPORT INFORMATION
  Report Type: Spontaneous
  Country: FR (occurrence: FR)
  Receive Date: 20220417
  Receipt Date: 20220417
  Transmission Date: 20220721
  Serious: Yes (Hospitalization)
  Sender: FDA-Public Use
  Company Number: None

PATIENT
  Age: 48 Year
  Sex: Female
  Weight: 116.5 kg

DRUGS (5)
  1. CITALOPRAM [Suspect]
     Active Substance: CITALOPRAM HYDROBROMIDE
     Indication: Intentional overdose
     Dosage: NP, CITALOPRAM BASE
     Route: 048
     Dates: start: 20220306, end: 20220306
  2. TRAMADOL [Suspect]
     Active Substance: TRAMADOL
     Indication: Intentional overdose
     Dosage: NP, TRAMADOL BASE
     Route: 048
     Dates: start: 20220306, end: 20220306
  3. ZOPICLONE [Suspect]
     Active Substance: ZOPICLONE
     Indication: Intentional overdose
     Dosage: NP
     Route: 048
     Dates: start: 20220306, end: 20220306
  4. OXAZEPAM [Suspect]
     Active Substance: OXAZEPAM
     Indication: Intentional overdose
     Dosage: NP
     Route: 048
     Dates: start: 20220306, end: 20220306
  5. PRAZEPAM [Suspect]
     Active Substance: PRAZEPAM
     Indication: Intentional overdose
     Dosage: NP
     Route: 048
     Dates: start: 20220306, end: 20220306

REACTIONS (2)
  - Intentional overdose [Recovered/Resolved]
  - Coma [Recovered/Resolved]

NARRATIVE: CASE EVENT DATE: 20220306
